FAERS Safety Report 5494364-8 (Version None)
Quarter: 2007Q4

REPORT INFORMATION
  Report Type: 
  Country: None (occurrence: None)
  Receive Date: 20071015
  Receipt Date: 20070724
  Transmission Date: 20080405
  Serious: Yes (Hospitalization)
  Sender: FDA-Public Use
  Company Number: S07-USA-03167-01

PATIENT
  Age: 24 Year
  Sex: Female

DRUGS (3)
  1. LEXAPRO [Suspect]
     Indication: ANXIETY
     Dosage: 10 MG QD PO
     Route: 048
     Dates: start: 20070721, end: 20070722
  2. LEXAPRO [Suspect]
     Indication: PANIC REACTION
     Dosage: 10 MG QD PO
     Route: 048
     Dates: start: 20070721, end: 20070722
  3. XANAX [Concomitant]

REACTIONS (5)
  - FEELING JITTERY [None]
  - HEART RATE INCREASED [None]
  - HYPOAESTHESIA [None]
  - SYNCOPE [None]
  - TENSION HEADACHE [None]
